FAERS Safety Report 5902606-7 (Version None)
Quarter: 2008Q3

REPORT INFORMATION
  Report Type: 
  Country: None (occurrence: None)
  Receive Date: 20080926
  Receipt Date: 20080912
  Transmission Date: 20090109
  Serious: Yes (Hospitalization)
  Sender: FDA-Public Use
  Company Number: THYR-1000074

PATIENT
  Age: 32 Year
  Sex: Female
  Weight: 68.9 kg

DRUGS (4)
  1. THYROGEN [Suspect]
     Indication: DIAGNOSTIC PROCEDURE
     Dosage: 0.9 MG, QD, INTRAMUSCULAR
     Route: 030
     Dates: start: 20080721, end: 20080722
  2. YASMIN [Suspect]
     Indication: CONTRACEPTION
     Dates: start: 20071001
  3. SYNTHROID [Concomitant]
  4. PROPANOLOL (PROPANOLOL) [Concomitant]

REACTIONS (14)
  - BLOOD HOMOCYSTEINE INCREASED [None]
  - CLAUSTROPHOBIA [None]
  - DIPLOPIA [None]
  - HEADACHE [None]
  - HYPOAESTHESIA [None]
  - LACUNAR INFARCTION [None]
  - MITRAL VALVE INCOMPETENCE [None]
  - MUSCULAR WEAKNESS [None]
  - PAIN [None]
  - PAIN IN EXTREMITY [None]
  - SENSATION OF HEAVINESS [None]
  - THALAMIC INFARCTION [None]
  - TREMOR [None]
  - VISION BLURRED [None]
